FAERS Safety Report 16798276 (Version 1)
Quarter: 2019Q3

REPORT INFORMATION
  Report Type: Spontaneous
  Country: US (occurrence: US)
  Receive Date: 20190912
  Receipt Date: 20190912
  Transmission Date: 20191005
  Serious: Yes (Hospitalization)
  Sender: FDA-Public Use
  Company Number: US-SUN PHARMACEUTICAL INDUSTRIES LTD-2019R1-220039

PATIENT
  Age: 53 Year
  Sex: Female

DRUGS (1)
  1. CITALOPRAM [Suspect]
     Active Substance: CITALOPRAM HYDROBROMIDE
     Indication: PRODUCT USED FOR UNKNOWN INDICATION
     Dosage: 180 TABLETS
     Route: 065

REACTIONS (4)
  - Overdose [Recovered/Resolved]
  - Hypotension [Recovered/Resolved]
  - Seizure [Recovered/Resolved]
  - Pulseless electrical activity [Recovered/Resolved]
